FAERS Safety Report 4602700-7 (Version None)
Quarter: 2005Q1

REPORT INFORMATION
  Report Type: 
  Country: None (occurrence: None)
  Receive Date: 20050308
  Receipt Date: 20050214
  Transmission Date: 20050727
  Serious: Yes (Other)
  Sender: FDA-Public Use
  Company Number: 6000002-2005-00130

PATIENT
  Age: 70 Year
  Sex: Female

DRUGS (2)
  1. RIMSO-50 [Suspect]
     Indication: CYSTITIS INTERSTITIAL
     Dosage: SEE H10
  2. CO-DYDRAMOL [Concomitant]

REACTIONS (2)
  - MEDICATION ERROR [None]
  - VULVOVAGINAL DISCOMFORT [None]
